FAERS Safety Report 8011286-9 (Version None)
Quarter: 2011Q4

REPORT INFORMATION
  Report Type: 
  Country: None (occurrence: None)
  Receive Date: 20111227
  Receipt Date: 20111227
  Transmission Date: 20120403
  Serious: Yes (Other)
  Sender: FDA-Public Use
  Company Number: None

PATIENT
  Age: 56 Year
  Sex: Female
  Weight: 63.956 kg

DRUGS (1)
  1. BONIVA [Suspect]
     Dosage: 150
     Route: 048
     Dates: start: 20080301, end: 20110610

REACTIONS (3)
  - MUSCLE TWITCHING [None]
  - PAIN IN EXTREMITY [None]
  - TOOTH DISORDER [None]
